FAERS Safety Report 7982969-1 (Version None)
Quarter: 2011Q4

REPORT INFORMATION
  Report Type: 
  Country: None (occurrence: None)
  Receive Date: 20111215
  Receipt Date: 20111208
  Transmission Date: 20120403
  Serious: Yes (Other)
  Sender: FDA-Public Use
  Company Number: US-B.I. PHARMACEUTICALS,INC./RIDGEFIELD-2011-EU-01007GD

PATIENT
  Sex: Male
  Weight: 2.075 kg

DRUGS (4)
  1. DIPYRIDAMOLE [Suspect]
     Indication: MATERNAL EXPOSURE DURING PREGNANCY
     Route: 064
  2. WARFARIN SODIUM [Suspect]
     Indication: MATERNAL EXPOSURE DURING PREGNANCY
     Route: 064
  3. ASPIRIN [Suspect]
     Indication: MATERNAL EXPOSURE DURING PREGNANCY
     Route: 064
  4. HEPARIN [Suspect]
     Indication: MATERNAL EXPOSURE DURING PREGNANCY
     Route: 064

REACTIONS (2)
  - LOW BIRTH WEIGHT BABY [None]
  - PREMATURE BABY [None]
